FAERS Safety Report 6535771-1 (Version None)
Quarter: 2010Q1

REPORT INFORMATION
  Report Type: 
  Country: None (occurrence: None)
  Receive Date: 20100106
  Receipt Date: 20091222
  Transmission Date: 20100710
  Serious: Yes (Other)
  Sender: FDA-Public Use
  Company Number: GB-001290

PATIENT
  Age: 55 Year
  Sex: Male

DRUGS (12)
  1. SOMATROPIN (SOMATROPIN) INJECTION 10 MG [Suspect]
     Indication: HYPOPITUITARISM
     Dosage: 10 MG [2] SUBCUTANEOUS
     Route: 058
     Dates: end: 20071001
  2. ATORVASTATIN CALCIUM [Concomitant]
  3. CLOPIDOGREL [Concomitant]
  4. FENOFIBRATE [Concomitant]
  5. METFORMIN HCL [Concomitant]
  6. HEPARINOID (HEPARINOID) [Concomitant]
  7. INSULIN ASPART (INSULIN ASPART) [Concomitant]
  8. ROSIGLITAZONE MALEATE [Concomitant]
  9. SALBUTAMOL (SALBUTAMOL) [Concomitant]
  10. SERETIDE /01420901/ (SERETIDE /01420901/) [Concomitant]
  11. VALSARTAN [Concomitant]
  12. VARDENAFIL (VARDENAFIL) [Concomitant]

REACTIONS (4)
  - BLOOD PRESSURE INCREASED [None]
  - BURNING SENSATION [None]
  - DYSGEUSIA [None]
  - HYPERHIDROSIS [None]
